FAERS Safety Report 9631800 (Version 1)
Quarter: 2013Q4

REPORT INFORMATION
  Report Type: Spontaneous
  Country: CH (occurrence: None)
  Receive Date: 20131015
  Receipt Date: 20131015
  Transmission Date: 20140711
  Serious: Yes (Hospitalization)
  Sender: FDA-Public Use
  Company Number: FK201304519

PATIENT
  Age: 67 Year
  Sex: Female

DRUGS (3)
  1. MORPHINE (MANUFACTURER UNKNOWN) (MORPHINE) (MORPHINE) [Suspect]
     Indication: PAIN
     Route: 037
  2. CALCIUM CARBONATE [Suspect]
     Indication: OSTEOPOROSIS
  3. CALCIUM CARBONATE (HYDROCHLOROTHIAZIDE ) [Concomitant]

REACTIONS (9)
  - Milk-alkali syndrome [None]
  - Somnolence [None]
  - Blood pressure increased [None]
  - Respiratory acidosis [None]
  - Hypercapnia [None]
  - Metabolic alkalosis [None]
  - Hypercalcaemia [None]
  - Renal failure [None]
  - Hyperparathyroidism [None]
